FAERS Safety Report 9784786 (Version 1)
Quarter: 2013Q4

REPORT INFORMATION
  Report Type: Spontaneous
  Country: FR (occurrence: FR)
  Receive Date: 20131227
  Receipt Date: 20131227
  Transmission Date: 20140711
  Serious: Yes (Hospitalization)
  Sender: FDA-Public Use
  Company Number: FR-ROCHE-1322320

PATIENT
  Age: 77 Year
  Sex: Male

DRUGS (5)
  1. VALIUM [Suspect]
     Indication: PRODUCT USED FOR UNKNOWN INDICATION
     Route: 065
     Dates: end: 20131019
  2. VALIUM [Suspect]
     Dosage: 1%
     Route: 048
     Dates: start: 20131025, end: 20131105
  3. AVASTIN [Suspect]
     Indication: PRODUCT USED FOR UNKNOWN INDICATION
     Route: 065
  4. RISPERDAL [Concomitant]
     Route: 065
     Dates: end: 20131019
  5. NOZINAN (FRANCE) [Concomitant]
     Route: 065
     Dates: end: 20131019

REACTIONS (1)
  - Confusional state [Recovered/Resolved]
